FAERS Safety Report 5429573-7 (Version None)
Quarter: 2007Q3

REPORT INFORMATION
  Report Type: 
  Country: None (occurrence: None)
  Receive Date: 20070829
  Receipt Date: 20070817
  Transmission Date: 20080115
  Serious: Yes (Hospitalization)
  Sender: FDA-Public Use
  Company Number: US-ROCHE-512251

PATIENT
  Age: 58 Year
  Sex: Male

DRUGS (2)
  1. PEG-INTERFERON A-2A (RO 25-8310) [Suspect]
     Route: 065
     Dates: start: 20070427, end: 20070810
  2. RIBAVIRIN [Suspect]
     Route: 065
     Dates: start: 20070427, end: 20070810

REACTIONS (2)
  - CHOLECYSTECTOMY [None]
  - PANCREATITIS [None]
